FAERS Safety Report 13057889 (Version 6)
Quarter: 2017Q3

REPORT INFORMATION
  Report Type: Spontaneous
  Country: JP (occurrence: JP)
  Receive Date: 20161223
  Receipt Date: 20170905
  Transmission Date: 20171127
  Serious: Yes (Other)
  Sender: FDA-Public Use
  Company Number: JP-PFIZER INC-2016588100

PATIENT
  Age: 47 Year
  Sex: Male
  Weight: 69 kg

DRUGS (9)
  1. FOSPHENYTOIN SODIUM. [Suspect]
     Active Substance: FOSPHENYTOIN SODIUM
     Indication: STATUS EPILEPTICUS
     Dosage: 600 MG, 1X/DAY
     Route: 042
     Dates: start: 20140816, end: 20140817
  2. FENTANYL CITRATE. [Concomitant]
     Active Substance: FENTANYL CITRATE
     Dosage: 1.2 MG, 1X/DAY
     Route: 042
     Dates: start: 20140817, end: 20140818
  3. PERDIPINE [Concomitant]
     Active Substance: NICARDIPINE HYDROCHLORIDE
     Dosage: 24 MG, 1X/DAY
     Route: 042
     Dates: start: 20140818, end: 20140818
  4. METGLUCO [Concomitant]
     Active Substance: METFORMIN HYDROCHLORIDE
     Dosage: 1500 MG, 1X/DAY
     Route: 048
     Dates: start: 20140817, end: 20140904
  5. E KEPPRA [Concomitant]
     Active Substance: LEVETIRACETAM
     Dosage: 2000 MG, 1X/DAY
     Route: 048
     Dates: start: 20140817, end: 20140821
  6. DEPAKENE [Concomitant]
     Active Substance: VALPROIC ACID
     Dosage: 2000 MG, 1X/DAY
     Route: 048
     Dates: start: 20140817, end: 20140904
  7. NEXIUM [Concomitant]
     Active Substance: ESOMEPRAZOLE MAGNESIUM
     Dosage: 20 MG, 1X/DAY
     Route: 048
     Dates: start: 20140817, end: 20140818
  8. GASTER [Suspect]
     Active Substance: FAMOTIDINE
     Dosage: 20 MG, 1X/DAY
     Route: 042
     Dates: start: 20140817, end: 20140817
  9. PRECEDEX [Concomitant]
     Active Substance: DEXMEDETOMIDINE HYDROCHLORIDE
     Dosage: 144 MG, 1X/DAY
     Route: 042
     Dates: start: 20140818, end: 20140821

REACTIONS (2)
  - Liver disorder [Recovered/Resolved]
  - Rhabdomyolysis [Recovered/Resolved]

NARRATIVE: CASE EVENT DATE: 20140817
